FAERS Safety Report 25281499 (Version 3)
Quarter: 2025Q4

REPORT INFORMATION
  Report Type: Report from Study
  Country: US (occurrence: None)
  Receive Date: 20250508
  Receipt Date: 20251229
  Transmission Date: 20260117
  Serious: Yes (Other)
  Sender: UCB
  Company Number: US-UCBSA-2022070494

PATIENT
  Weight: 66.2 kg

DRUGS (23)
  1. FENFLURAMINE [Suspect]
     Active Substance: FENFLURAMINE
     Indication: Product used for unknown indication
     Dosage: 5.9 MILLILITER, 2X/DAY (BID)
  2. FENFLURAMINE [Suspect]
     Active Substance: FENFLURAMINE
     Dosage: 11.4 MILLIGRAM, 2X/DAY (BID)
  3. ACETAMINOPHEN [Concomitant]
     Active Substance: ACETAMINOPHEN
     Indication: Pain
     Dosage: 640 MILLIGRAM, EVERY 6 HOURS AS NEEDED
  4. ACETAMINOPHEN [Concomitant]
     Active Substance: ACETAMINOPHEN
     Indication: Pyrexia
  5. acety [Concomitant]
     Indication: Product used for unknown indication
     Dosage: 900 MILLIGRAM, ONCE DAILY (QD)
  6. ALBUTEROL SULFATE [Concomitant]
     Active Substance: ALBUTEROL SULFATE
     Indication: Wheezing
     Dosage: ACTUATION INHALER, INHALE 2 PUFFS EVERY FOUR HOURS IF NEEDED
  7. a c;omplex tablet [Concomitant]
     Indication: Product used for unknown indication
     Dosage: TAKE 1 TABLET
  8. BD Ultra-Fine [Concomitant]
     Indication: Blood growth hormone
     Dosage: ULTRA-FINE MINI PGLN NEEDLE 31 GAUGE X 3/16^ NEEDLE, 1 PEN NEEDLE
  9. CANNABIDIOL [Concomitant]
     Active Substance: CANNABIDIOL
     Indication: Product used for unknown indication
     Dosage: 100 MG/ML SOLUTION
  10. CETIRIZINE [Concomitant]
     Active Substance: CETIRIZINE HYDROCHLORIDE
     Indication: Hypersensitivity
     Dosage: 10 MILLILITER
     Route: 061
  11. CHOLECALCIFEROL [Concomitant]
     Active Substance: CHOLECALCIFEROL
     Indication: Product used for unknown indication
     Dosage: 400 MILLIGRAM, ONCE DAILY (QD)
  12. doBAZam [Concomitant]
     Indication: Product used for unknown indication
     Dosage: 10 MILLIGRAM
     Route: 061
  13. doBAZam [Concomitant]
     Dosage: 10 MILLIGRAM, 2X/DAY (BID)
  14. DIVALPROEX SODIUM [Concomitant]
     Active Substance: DIVALPROEX SODIUM
     Indication: Product used for unknown indication
     Dosage: 375 MILLIGRAM, 2X/DAY (BID)
  15. docosahexaenolc [Concomitant]
     Indication: Product used for unknown indication
     Dosage: 4 MILLILITER, ONCE DAILY (QD)
  16. IBUPROFEN [Concomitant]
     Active Substance: IBUPROFEN
     Indication: Pain
     Dosage: 400 MILLIGRAM,EVERY SIX HOURS AS NEEDED
  17. LEVOCARNITINE [Concomitant]
     Active Substance: LEVOCARNITINE
     Indication: Product used for unknown indication
     Dosage: 200 MILLIGRAM, ONCE DAILY (QD)
  18. MIDAZOLAM [Concomitant]
     Active Substance: MIDAZOLAM
     Indication: Seizure
     Dosage: 4 MILLIGRAM, AS NEEDED (PRN)
  19. ONDANSETRON [Concomitant]
     Active Substance: ONDANSETRON
     Indication: Nausea
     Dosage: DISSOLVE 2 TABLETS IN MOUTH EVERY EIGHT HOURS IF NEEDED
  20. SELENIUM [Concomitant]
     Active Substance: SELENIUM
     Indication: Product used for unknown indication
     Dosage: 200 MICROGRAM
  21. som [Concomitant]
     Indication: Growth hormone deficiency
     Dosage: 0.9 MILLIGRAM, ONCE DAILY (QD)
  22. TRIAMCINOLONE [Concomitant]
     Active Substance: TRIAMCINOLONE
     Indication: Eczema
     Dosage: UNK, 2X/DAY (BID)
  23. VALPROIC ACID [Concomitant]
     Active Substance: VALPROIC ACID
     Indication: Product used for unknown indication
     Dosage: 125 MG QAM AND 250 MG QPM

REACTIONS (3)
  - Tricuspid valve incompetence [Recovering/Resolving]
  - Pulmonary valve incompetence [Unknown]
  - COVID-19 [Not Recovered/Not Resolved]
